FAERS Safety Report 23558739 (Version 2)
Quarter: 2024Q2

REPORT INFORMATION
  Report Type: Report from Study
  Country: CA (occurrence: CA)
  Receive Date: 20240223
  Receipt Date: 20240502
  Transmission Date: 20240715
  Serious: Yes (Hospitalization, Other)
  Sender: FDA-Public Use
  Company Number: CA-LEO Pharma-361951

PATIENT
  Age: 41 Year
  Sex: Male

DRUGS (9)
  1. ADBRY [Suspect]
     Active Substance: TRALOKINUMAB-LDRM
     Indication: Dermatitis atopic
     Dosage: MAINTENANCE DOSE: 300MG SC EVERY 2 WEEKS?FORMAT: PREFILLED SYRINGES 150 MG/ML?TREATMENT IS ONGOING
     Route: 058
     Dates: start: 20230531
  2. ADBRY [Suspect]
     Active Substance: TRALOKINUMAB-LDRM
     Indication: Dermatitis atopic
     Dosage: MAINTENANCE DOSE: 300MG SC EVERY 2 WEEKS?FORMAT: PREFILLED SYRINGES 150 MG/ML?TREATMENT IS ONGOING
     Route: 058
     Dates: start: 20230531
  3. ADBRY [Suspect]
     Active Substance: TRALOKINUMAB-LDRM
     Indication: Dermatitis atopic
     Dosage: LOADING DOSE.?FORMAT: PREFILLED SYRINGES 150 MG/ML
     Route: 058
  4. ADBRY [Suspect]
     Active Substance: TRALOKINUMAB-LDRM
     Indication: Dermatitis atopic
     Dosage: LOADING DOSE.?FORMAT: PREFILLED SYRINGES 150 MG/ML
     Route: 058
  5. ADBRY [Suspect]
     Active Substance: TRALOKINUMAB-LDRM
     Indication: Dermatitis atopic
     Dosage: FORMAT: 150 MG/ML PRE-FILLED SYRINGE; TREATMENT IS ONGOING
     Route: 058
     Dates: start: 20230331
  6. ADBRY [Suspect]
     Active Substance: TRALOKINUMAB-LDRM
     Indication: Dermatitis atopic
     Dosage: FORMAT: 150 MG/ML PRE-FILLED SYRINGE; TREATMENT IS ONGOING
     Route: 058
     Dates: start: 20230331
  7. ADBRY [Suspect]
     Active Substance: TRALOKINUMAB-LDRM
     Indication: Dermatitis atopic
     Dates: start: 20240418
  8. ADBRY [Suspect]
     Active Substance: TRALOKINUMAB-LDRM
     Indication: Dermatitis atopic
     Dates: start: 20240418
  9. DIPROLENE [Concomitant]
     Active Substance: BETAMETHASONE DIPROPIONATE
     Indication: Product used for unknown indication
     Dosage: TREATMENT IS ONGOING

REACTIONS (3)
  - Corneal transplant [Not Recovered/Not Resolved]
  - Injection site pain [Not Recovered/Not Resolved]
  - Injection site haemorrhage [Not Recovered/Not Resolved]

NARRATIVE: CASE EVENT DATE: 20230808
